FAERS Safety Report 4354655-0 (Version None)
Quarter: 2004Q2

REPORT INFORMATION
  Report Type: 
  Country: None (occurrence: None)
  Receive Date: 20040503
  Receipt Date: 20040415
  Transmission Date: 20050107
  Serious: Yes (Death)
  Sender: FDA-Public Use
  Company Number: A03200401180

PATIENT
  Age: 30 Year
  Sex: Female

DRUGS (1)
  1. DEMEROL - PETHIDINE HYDROCHLORIDE - UNKNOWN - UNIT DOSE : UNKNOWN [Suspect]

REACTIONS (1)
  - DRUG TOXICITY [None]
